FAERS Safety Report 23646238 (Version 1)
Quarter: 2024Q1

REPORT INFORMATION
  Report Type: Other
  Country: FI (occurrence: None)
  Receive Date: 20240319
  Receipt Date: 20240319
  Transmission Date: 20240409
  Serious: Yes (Death, Life-Threatening, Other)
  Sender: FDA-Public Use
  Company Number: FI-ROCHE-3527152

PATIENT

DRUGS (7)
  1. ATEZOLIZUMAB [Suspect]
     Active Substance: ATEZOLIZUMAB
     Indication: Metastatic neoplasm
     Route: 042
  2. AVELUMAB [Suspect]
     Active Substance: AVELUMAB
     Indication: Metastatic neoplasm
     Route: 042
  3. IPILIMUMAB [Suspect]
     Active Substance: IPILIMUMAB
     Indication: Metastatic neoplasm
     Route: 042
  4. NIVOLUMAB [Suspect]
     Active Substance: NIVOLUMAB
     Indication: Metastatic neoplasm
     Route: 042
  5. PEMBROLIZUMAB [Suspect]
     Active Substance: PEMBROLIZUMAB
     Indication: Metastatic neoplasm
     Route: 042
  6. CEMIPLIMAB [Suspect]
     Active Substance: CEMIPLIMAB
     Indication: Metastatic neoplasm
     Route: 042
  7. DURVALUMAB [Suspect]
     Active Substance: DURVALUMAB
     Indication: Metastatic neoplasm
     Route: 042

REACTIONS (14)
  - Encephalitis [Fatal]
  - Pneumonitis [Unknown]
  - Colitis [Unknown]
  - Pancreatitis [Unknown]
  - Hepatitis [Unknown]
  - Myocarditis [Unknown]
  - Myositis [Unknown]
  - Dermatitis [Unknown]
  - Delirium [Unknown]
  - Type 1 diabetes mellitus [Unknown]
  - Renal tubular acidosis [Unknown]
  - Neuropathy peripheral [Unknown]
  - Arthritis [Unknown]
  - Hyperthyroidism [Unknown]
